FAERS Safety Report 8140716-7 (Version None)
Quarter: 2012Q1

REPORT INFORMATION
  Report Type: 
  Country: None (occurrence: None)
  Receive Date: 20120216
  Receipt Date: 20120206
  Transmission Date: 20120608
  Serious: Yes (Other)
  Sender: FDA-Public Use
  Company Number: US-SANOFI-AVENTIS-2012SA000311

PATIENT
  Age: 61 Year
  Sex: Male
  Weight: 106 kg

DRUGS (8)
  1. ALISKIREN [Concomitant]
  2. CRESTOR [Concomitant]
  3. INSULIN DETEMIR [Concomitant]
     Dosage: 100 UNITS/ML PRN
  4. APIDRA [Suspect]
     Dosage: DOSE:150 UNIT(S)
     Route: 058
     Dates: start: 20080114, end: 20111222
  5. TRICOR [Concomitant]
  6. ALLEGRA [Concomitant]
  7. INSULIN PUMP [Suspect]
  8. NIASPAN [Concomitant]
     Dosage: 2 TABLETS DAILY

REACTIONS (3)
  - PRODUCT QUALITY ISSUE [None]
  - INJECTION SITE INFECTION [None]
  - CELLULITIS [None]
